FAERS Safety Report 12896354 (Version 1)
Quarter: 2016Q4

REPORT INFORMATION
  Report Type: Spontaneous
  Country: US (occurrence: US)
  Receive Date: 20161028
  Receipt Date: 20161028
  Transmission Date: 20170207
  Serious: Yes (Disabling)
  Sender: FDA-Public Use
  Company Number: None

PATIENT
  Age: 74 Year
  Sex: Female

DRUGS (2)
  1. AMIKACIN [Suspect]
     Active Substance: AMIKACIN
     Indication: LUNG DISORDER
     Dosage: M-W-F  VIA NEBULIZER
     Dates: start: 20140427
  2. AMIKACIN [Suspect]
     Active Substance: AMIKACIN
     Indication: CONDITION AGGRAVATED
     Dosage: M-W-F  VIA NEBULIZER
     Dates: start: 20140427

REACTIONS (2)
  - Deafness [None]
  - Tinnitus [None]
